FAERS Safety Report 15335746 (Version 1)
Quarter: 2018Q3

REPORT INFORMATION
  Report Type: Spontaneous
  Country: PL (occurrence: PL)
  Receive Date: 20180830
  Receipt Date: 20180830
  Transmission Date: 20181010
  Serious: Yes (Hospitalization)
  Sender: FDA-Public Use
  Company Number: PL-TEVA-706422ACC

PATIENT
  Age: 79 Year
  Sex: Female
  Weight: 64 kg

DRUGS (3)
  1. CIPROFLOXACINE [Suspect]
     Active Substance: CIPROFLOXACIN
     Indication: INFECTION
     Route: 048
  2. AMOXICILLIN W/CLAVULANIC ACID [Suspect]
     Active Substance: AMOXICILLIN\CLAVULANIC ACID
     Indication: INFECTION
     Route: 048
  3. CEFUROXIME AXETIL. [Suspect]
     Active Substance: CEFUROXIME AXETIL
     Indication: INFECTION
     Route: 048

REACTIONS (1)
  - Rash maculo-papular [Recovered/Resolved]

NARRATIVE: CASE EVENT DATE: 20160602
